FAERS Safety Report 21554934 (Version 2)
Quarter: 2024Q4

REPORT INFORMATION
  Report Type: Spontaneous
  Country: US (occurrence: US)
  Receive Date: 20221104
  Receipt Date: 20241227
  Transmission Date: 20250115
  Serious: Yes (Other)
  Sender: PFIZER
  Company Number: US-PFIZER INC-PV202200095868

PATIENT
  Age: 72 Year
  Sex: Female
  Weight: 81.19 kg

DRUGS (2)
  1. IBRANCE [Suspect]
     Active Substance: PALBOCICLIB
     Dosage: 1 TABLET DAILY ON D 1-21 OF A 28D CYCLE. TAKE WHOLE W/ WATER W/ OR W/O FOOD AT THE SAME TIME DAILY
     Route: 048
  2. FULVESTRANT [Concomitant]
     Active Substance: FULVESTRANT
     Dosage: UNK, CYCLIC (Q28D)

REACTIONS (1)
  - Femur fracture [Unknown]
